FAERS Safety Report 10485744 (Version 3)
Quarter: 2014Q4

REPORT INFORMATION
  Report Type: Spontaneous
  Country: US (occurrence: US)
  Receive Date: 20141001
  Receipt Date: 20141029
  Transmission Date: 20150528
  Serious: Yes (Hospitalization)
  Sender: FDA-Public Use
  Company Number: US-UNITED THERAPEUTICS-UNT-2014-008317

PATIENT
  Sex: Female

DRUGS (2)
  1. REMODULIN [Suspect]
     Active Substance: TREPROSTINIL
     Indication: PULMONARY ARTERIAL HYPERTENSION
     Dosage: 0.028 ?G/KG, CONTINUING
     Route: 041
     Dates: start: 20140515
  2. REMODULIN [Suspect]
     Active Substance: TREPROSTINIL
     Indication: PULMONARY HYPERTENSION
     Dosage: 3 ML, CONTINUING
     Route: 041
     Dates: start: 20140515

REACTIONS (5)
  - Oedema [Unknown]
  - Dyspnoea [Unknown]
  - Fluid overload [Unknown]
  - Sickle cell anaemia with crisis [Unknown]
  - Fluid retention [Unknown]

NARRATIVE: CASE EVENT DATE: 20140923
